FAERS Safety Report 7674482-6 (Version None)
Quarter: 2011Q3

REPORT INFORMATION
  Report Type: 
  Country: None (occurrence: None)
  Receive Date: 20110810
  Receipt Date: 20110804
  Transmission Date: 20111222
  Serious: Yes (Death, Other)
  Sender: FDA-Public Use
  Company Number: JP-ROCHE-780468

PATIENT
  Sex: Female

DRUGS (12)
  1. BEVACIZUMAB [Suspect]
     Route: 041
     Dates: start: 20101014, end: 20101014
  2. OXALIPLATIN [Concomitant]
     Route: 041
     Dates: start: 20101014, end: 20101014
  3. CAPECITABINE [Suspect]
     Route: 048
     Dates: start: 20100909, end: 20100922
  4. BEVACIZUMAB [Suspect]
     Route: 041
     Dates: start: 20100909, end: 20100909
  5. OXALIPLATIN [Concomitant]
     Route: 041
     Dates: start: 20100722, end: 20100722
  6. BEVACIZUMAB [Suspect]
     Route: 041
     Dates: start: 20100812, end: 20100812
  7. OXALIPLATIN [Concomitant]
     Route: 041
     Dates: start: 20100812, end: 20100812
  8. CAPECITABINE [Suspect]
     Indication: COLON CANCER METASTATIC
     Route: 048
     Dates: start: 20100722, end: 20100804
  9. CAPECITABINE [Suspect]
     Route: 048
     Dates: start: 20100812, end: 20100825
  10. CAPECITABINE [Suspect]
     Route: 048
     Dates: start: 20101014, end: 20101027
  11. BEVACIZUMAB [Suspect]
     Indication: COLON CANCER METASTATIC
     Route: 041
     Dates: start: 20100722, end: 20100722
  12. OXALIPLATIN [Concomitant]
     Route: 041
     Dates: start: 20100909, end: 20100909

REACTIONS (5)
  - IMPAIRED HEALING [None]
  - PALMAR-PLANTAR ERYTHRODYSAESTHESIA SYNDROME [None]
  - SEPTIC SHOCK [None]
  - HEPATIC FAILURE [None]
  - SEPSIS [None]
